FAERS Safety Report 24327564 (Version 3)
Quarter: 2024Q4

REPORT INFORMATION
  Report Type: Spontaneous
  Country: US (occurrence: US)
  Receive Date: 20240917
  Receipt Date: 20241114
  Transmission Date: 20250114
  Serious: Yes (Death, Hospitalization, Other)
  Sender: PFIZER
  Company Number: US-SeattleGenetics-2011SGN00366

PATIENT
  Age: 50 Year
  Sex: Male

DRUGS (5)
  1. BRENTUXIMAB VEDOTIN [Suspect]
     Active Substance: BRENTUXIMAB VEDOTIN
     Indication: Hodgkin^s disease
     Dosage: 1.8 MG/KG, Q21D/ 5 DOSES (1.8 MG/KG)
     Route: 042
     Dates: start: 20110523, end: 20110815
  2. BRENTUXIMAB VEDOTIN [Suspect]
     Active Substance: BRENTUXIMAB VEDOTIN
     Dosage: 1.2 MG/KG, Q21D/ 2 ADDITIONAL DOSES (1.2 MG/KG)
     Dates: start: 20110914, end: 20111024
  3. IFOSFAMIDE [Concomitant]
     Active Substance: IFOSFAMIDE
     Indication: Hodgkin^s disease
     Dosage: AFTER BRENTUXIMAB VEDOTIN: AUGMENTED ICE (2 CYCLES)
  4. CARBOPLATIN [Concomitant]
     Active Substance: CARBOPLATIN
     Indication: Hodgkin^s disease
     Dosage: AFTER BRENTUXIMAB VEDOTIN: AUGMENTED ICE (2 CYCLES)
  5. ETOPOSIDE [Concomitant]
     Active Substance: ETOPOSIDE
     Indication: Hodgkin^s disease
     Dosage: AFTER BRENTUXIMAB VEDOTIN: AUGMENTED ICE (2 CYCLES)

REACTIONS (8)
  - Hodgkin^s disease [Fatal]
  - Progressive multifocal leukoencephalopathy [Fatal]
  - Central nervous system lesion [Unknown]
  - Central nervous system lesion [Unknown]
  - Neuropathy peripheral [Not Recovered/Not Resolved]
  - Dizziness [Recovered/Resolved]
  - Hypoaesthesia [Recovered/Resolved]
  - Fatigue [Not Recovered/Not Resolved]

NARRATIVE: CASE EVENT DATE: 20110101
